FAERS Safety Report 16093182 (Version 2)
Quarter: 2019Q1

REPORT INFORMATION
  Report Type: Spontaneous
  Country: US (occurrence: US)
  Receive Date: 20190320
  Receipt Date: 20190322
  Transmission Date: 20190418
  Serious: Yes (Other)
  Sender: FDA-Public Use
  Company Number: US-ROCHE-2284661

PATIENT
  Sex: Male

DRUGS (1)
  1. LUCENTIS [Suspect]
     Active Substance: RANIBIZUMAB
     Indication: NEOVASCULAR AGE-RELATED MACULAR DEGENERATION
     Dosage: INJECTION IS FOR THE RIGHT EYE
     Route: 031

REACTIONS (7)
  - Aortic disorder [Unknown]
  - Sinusitis [Unknown]
  - Epistaxis [Recovered/Resolved]
  - Neoplasm malignant [Unknown]
  - Injection site pain [Unknown]
  - Pain [Unknown]
  - Visual impairment [Unknown]
